FAERS Safety Report 9614085 (Version 3)
Quarter: 2013Q4

REPORT INFORMATION
  Report Type: Report from Study
  Country: RU (occurrence: RU)
  Receive Date: 20131011
  Receipt Date: 20131023
  Transmission Date: 20140711
  Serious: Yes (Other)
  Sender: FDA-Public Use
  Company Number: RU-ROCHE-1204123

PATIENT
  Age: 57 Year
  Sex: Male
  Weight: 92 kg

DRUGS (8)
  1. AVASTIN [Suspect]
     Indication: COLON CANCER METASTATIC
     Route: 042
     Dates: start: 20120802, end: 20130315
  2. AVASTIN [Suspect]
     Route: 042
     Dates: start: 20130315, end: 20131021
  3. XELODA [Suspect]
     Indication: COLON CANCER METASTATIC
     Dosage: 1-14 DAYS
     Route: 065
     Dates: start: 20130819, end: 20131021
  4. FLUOROURACIL [Concomitant]
     Indication: COLON CANCER METASTATIC
     Route: 042
     Dates: start: 20120802, end: 20121229
  5. LEUCOVORIN [Concomitant]
     Indication: COLON CANCER METASTATIC
     Route: 065
     Dates: start: 20120802, end: 20121229
  6. IRINOTECAN [Concomitant]
     Indication: COLON CANCER METASTATIC
     Route: 065
     Dates: start: 20120802, end: 20121229
  7. IRINOTECAN [Concomitant]
     Route: 065
     Dates: start: 20130315, end: 20130607
  8. OXALIPLATIN [Concomitant]
     Indication: COLON CANCER METASTATIC
     Route: 065
     Dates: start: 20130315, end: 20130607

REACTIONS (3)
  - Disease progression [Not Recovered/Not Resolved]
  - General physical health deterioration [Not Recovered/Not Resolved]
  - Jaundice cholestatic [Not Recovered/Not Resolved]
